FAERS Safety Report 20564666 (Version 1)
Quarter: 2022Q1

REPORT INFORMATION
  Report Type: Other
  Country: LB (occurrence: None)
  Receive Date: 20220308
  Receipt Date: 20220308
  Transmission Date: 20220423
  Serious: Yes (Hospitalization)
  Sender: FDA-Public Use
  Company Number: LB-ROCHE-3037076

PATIENT
  Sex: Female

DRUGS (1)
  1. TECENTRIQ [Suspect]
     Active Substance: ATEZOLIZUMAB
     Indication: Non-small cell lung cancer
     Route: 042
     Dates: start: 20211006

REACTIONS (3)
  - Nasopharyngitis [Unknown]
  - Thyroid disorder [Unknown]
  - Influenza [Unknown]

NARRATIVE: CASE EVENT DATE: 20220201
